FAERS Safety Report 11906554 (Version 3)
Quarter: 2016Q2

REPORT INFORMATION
  Report Type: Report from Study
  Country: CA (occurrence: CA)
  Receive Date: 20160111
  Receipt Date: 20160530
  Transmission Date: 20160815
  Serious: Yes (Death, Hospitalization)
  Sender: FDA-Public Use
  Company Number: PHHY2014CA148724

PATIENT
  Age: 67 Year
  Sex: Male

DRUGS (8)
  1. EXJADE [Suspect]
     Active Substance: DEFERASIROX
     Dosage: 1000 MG, QD
     Route: 048
     Dates: start: 20160210
  2. EXJADE [Suspect]
     Active Substance: DEFERASIROX
     Dosage: 1125 MG, QD
     Route: 048
  3. EXJADE [Suspect]
     Active Substance: DEFERASIROX
     Dosage: 1000 MG, QD
     Route: 048
  4. EXJADE [Suspect]
     Active Substance: DEFERASIROX
     Dosage: 1120 MG, QD
     Route: 048
  5. POTASSIUM [Concomitant]
     Active Substance: POTASSIUM
     Indication: PRODUCT USED FOR UNKNOWN INDICATION
     Route: 065
  6. EXJADE [Suspect]
     Active Substance: DEFERASIROX
     Dosage: 750 MG, QD
     Route: 048
  7. SOLARIS [Concomitant]
     Indication: PRODUCT USED FOR UNKNOWN INDICATION
     Route: 065
  8. EXJADE [Suspect]
     Active Substance: DEFERASIROX
     Indication: ANAEMIA
     Dosage: 375 MG, QD
     Route: 048
     Dates: start: 20141101

REACTIONS (14)
  - Heart rate increased [Unknown]
  - Eating disorder [Unknown]
  - Pyrexia [Unknown]
  - Tongue disorder [Unknown]
  - Chest pain [Recovered/Resolved]
  - Headache [Unknown]
  - Limb discomfort [Unknown]
  - Cholelithiasis [Unknown]
  - Chromaturia [Recovered/Resolved]
  - Death [Fatal]
  - Asthenia [Unknown]
  - Dysuria [Unknown]
  - Faeces hard [Unknown]
  - No therapeutic response [Unknown]

NARRATIVE: CASE EVENT DATE: 201411
